FAERS Safety Report 22027407 (Version 1)
Quarter: 2023Q1

REPORT INFORMATION
  Report Type: Spontaneous
  Country: US (occurrence: None)
  Receive Date: 20230223
  Receipt Date: 20230223
  Transmission Date: 20230418
  Serious: No
  Sender: FDA-Public Use
  Company Number: US-ROCHE-3252472

PATIENT
  Age: 67 Year
  Sex: Male
  Weight: 79.450 kg

DRUGS (3)
  1. XOLAIR [Suspect]
     Active Substance: OMALIZUMAB
     Indication: Asthma
     Route: 058
     Dates: start: 2015
  2. XOLAIR [Suspect]
     Active Substance: OMALIZUMAB
     Indication: Asthma
     Dosage: TWO INJECTIONS INTO LEFT ARM
     Route: 030
     Dates: start: 2022
  3. XOLAIR [Suspect]
     Active Substance: OMALIZUMAB
     Dosage: 150ML INJECTION INTO EACH ARM
     Route: 030
     Dates: start: 2022, end: 202212

REACTIONS (1)
  - Arthralgia [Not Recovered/Not Resolved]

NARRATIVE: CASE EVENT DATE: 20220101
